FAERS Safety Report 8998358 (Version 1)
Quarter: 2013Q1

REPORT INFORMATION
  Report Type: Spontaneous
  Country: GB (occurrence: GB)
  Receive Date: 20130102
  Receipt Date: 20130102
  Transmission Date: 20140127
  Serious: Yes (Life-Threatening)
  Sender: FDA-Public Use
  Company Number: GB-ASTRAZENECA-2012SE96193

PATIENT
  Age: 17532 Day
  Sex: Male

DRUGS (5)
  1. BRILIQUE [Suspect]
     Route: 048
     Dates: start: 20120911, end: 20121106
  2. ASPIRIN [Concomitant]
  3. ATORVASTATIN [Concomitant]
  4. GLYCERYL TRINITRATE [Concomitant]
  5. RAMIPRIL [Concomitant]

REACTIONS (2)
  - Cardiac arrest [Recovered/Resolved]
  - Dizziness [Unknown]
